FAERS Safety Report 24890241 (Version 1)
Quarter: 2025Q1

REPORT INFORMATION
  Report Type: Spontaneous
  Country: US (occurrence: US)
  Receive Date: 20250127
  Receipt Date: 20250127
  Transmission Date: 20250409
  Serious: No
  Sender: PERRIGO
  Company Number: US-PERRIGO-24US001544

PATIENT
  Age: 12 Month
  Weight: 14.512 kg

DRUGS (1)
  1. IBUPROFEN [Suspect]
     Active Substance: IBUPROFEN
     Indication: Accidental exposure to product by child
     Route: 048
     Dates: start: 20240209, end: 20240209

REACTIONS (2)
  - Overdose [Unknown]
  - Accidental exposure to product by child [Unknown]
